FAERS Safety Report 8227557-7 (Version None)
Quarter: 2012Q1

REPORT INFORMATION
  Report Type: 
  Country: None (occurrence: None)
  Receive Date: 20120322
  Receipt Date: 20120315
  Transmission Date: 20120608
  Serious: Yes (Death)
  Sender: FDA-Public Use
  Company Number: JP-ASTRAZENECA-2012SE18669

PATIENT
  Age: 76 Year
  Sex: Female

DRUGS (12)
  1. PREDNISOLONE [Concomitant]
     Indication: MULTIPLE MYELOMA
     Dates: start: 20110104
  2. GRAN (G-CSF) [Concomitant]
  3. MEROPENEM [Suspect]
     Indication: FEBRILE NEUTROPENIA
     Route: 042
     Dates: start: 20110821, end: 20110826
  4. DERIBADEX [Concomitant]
  5. COTRIM [Concomitant]
  6. FAMOTIDINE [Concomitant]
  7. SLULACT [Concomitant]
  8. MEROPENEM [Suspect]
     Route: 042
     Dates: start: 20110829, end: 20110901
  9. REVLIMID [Concomitant]
     Indication: MULTIPLE MYELOMA
     Dates: start: 20101021, end: 20110104
  10. REVLIMID [Concomitant]
     Dates: start: 20110811
  11. HACHIAZULE GARGLE [Concomitant]
  12. SOLDEM 3AG [Concomitant]

REACTIONS (4)
  - BLOOD UREA INCREASED [None]
  - PETECHIAE [None]
  - PYREXIA [None]
  - ERYTHEMA [None]
